FAERS Safety Report 18066254 (Version 2)
Quarter: 2020Q3

REPORT INFORMATION
  Report Type: Spontaneous
  Country: US (occurrence: US)
  Receive Date: 20200724
  Receipt Date: 20200915
  Transmission Date: 20201103
  Serious: Yes (Other)
  Sender: FDA-Public Use
  Company Number: US-009507513-1912USA007277

PATIENT
  Sex: Female
  Weight: 88.1 kg

DRUGS (9)
  1. ATOMOXETINE HYDROCHLORIDE. [Concomitant]
     Active Substance: ATOMOXETINE HYDROCHLORIDE
     Indication: ATTENTION DEFICIT HYPERACTIVITY DISORDER
     Dosage: 40 MILLIGRAM TABLET, ONCE DAILY (QD)
     Dates: start: 201406
  2. INFLUENZA VIRUS SAG 4V VACCINE INACTIVATED [Suspect]
     Active Substance: INFLUENZA VIRUS VACCINE QUADRIVALENT TYPE A+B
     Dosage: 0.5 MILLILITER
     Route: 030
     Dates: start: 20161103
  3. ZOSTAVAX [Suspect]
     Active Substance: VARICELLA-ZOSTER VIRUS STRAIN OKA/MERCK LIVE ANTIGEN
     Indication: PROPHYLAXIS
     Dosage: .65 MILLILITER
     Route: 058
     Dates: start: 20161103
  4. TRAZODONE HYDROCHLORIDE. [Concomitant]
     Active Substance: TRAZODONE HYDROCHLORIDE
     Indication: FIBROMYALGIA
     Dosage: 1?2 100 MICROGRAM
     Dates: start: 2015
  5. TRAZODONE HYDROCHLORIDE. [Concomitant]
     Active Substance: TRAZODONE HYDROCHLORIDE
     Indication: POLYMYALGIA RHEUMATICA
  6. LEVOTHYROXINE SODIUM. [Concomitant]
     Active Substance: LEVOTHYROXINE SODIUM
     Indication: HYPOTHYROIDISM
     Dosage: 112 MICROGRAM, PER DAY (QD)
     Dates: start: 2014
  7. STERILE DILUENT (WATER) [Suspect]
     Active Substance: WATER
     Dosage: UNK
     Dates: start: 20161103
  8. VENLAFAXINE HYDROCHLORIDE. [Concomitant]
     Active Substance: VENLAFAXINE HYDROCHLORIDE
     Indication: ANXIETY
     Dosage: 70?300 MG TABLET, ONCE DAILY
     Dates: start: 2014
  9. VENLAFAXINE HYDROCHLORIDE. [Concomitant]
     Active Substance: VENLAFAXINE HYDROCHLORIDE
     Indication: DEPRESSION

REACTIONS (25)
  - Systemic lupus erythematosus [Unknown]
  - Hepatic cirrhosis [Unknown]
  - Vomiting [Unknown]
  - Decreased appetite [Unknown]
  - Suprapubic pain [Unknown]
  - Haematuria [Unknown]
  - Hypersomnia [Unknown]
  - Abdominal discomfort [Recovered/Resolved]
  - Hepatic steatosis [Unknown]
  - Pollakiuria [Unknown]
  - Nausea [Recovered/Resolved]
  - Tremor [Recovered/Resolved]
  - Headache [Unknown]
  - Major depression [Recovering/Resolving]
  - Autoimmune hepatitis [Unknown]
  - Chronic hepatic failure [Unknown]
  - Weight decreased [Unknown]
  - Insomnia [Unknown]
  - Serotonin syndrome [Unknown]
  - Road traffic accident [Unknown]
  - Gastric mucosa erythema [Unknown]
  - Asthenia [Unknown]
  - Gastritis erosive [Unknown]
  - Muscle spasms [Not Recovered/Not Resolved]
  - Diarrhoea [Unknown]

NARRATIVE: CASE EVENT DATE: 2016
